FAERS Safety Report 6291562-0 (Version None)
Quarter: 2009Q3

REPORT INFORMATION
  Report Type: 
  Country: None (occurrence: None)
  Receive Date: 20090730
  Receipt Date: 20090720
  Transmission Date: 20100115
  Serious: Yes (Disabling, Other)
  Sender: FDA-Public Use
  Company Number: PHEH2009US06651

PATIENT
  Sex: Female
  Weight: 70.748 kg

DRUGS (16)
  1. RECLAST [Suspect]
     Dosage: 5 MG, ONCE/SINGLE
     Dates: start: 20090417, end: 20090417
  2. ADVAIR HFA [Concomitant]
     Dosage: UNK
  3. ALBUTEROL [Concomitant]
     Dosage: UNK
  4. ASPIRIN [Concomitant]
     Dosage: 81 MG, QD
     Route: 048
  5. VITAMIN B-12 [Concomitant]
  6. MULTIPLE VITAMINS [Concomitant]
     Dosage: 1 TAB DAILY
  7. SLOW-FE FOLIC [Concomitant]
  8. CALCIUM CITRATE [Concomitant]
     Dosage: 500 MG
     Route: 048
  9. LOPRESSOR [Concomitant]
     Dosage: 25 MG, QD
     Route: 048
  10. EPIPEN [Concomitant]
  11. FLUOXETINE [Concomitant]
     Dosage: 20 MG, QD
     Route: 048
  12. PROTONIX [Concomitant]
     Dosage: 40 MG, QD
     Route: 048
  13. NASONEX [Concomitant]
     Dosage: 2 SPRAYS DAILY
  14. LOVASTATIN [Concomitant]
     Dosage: 40 MG, QD
  15. MELOXICAM [Concomitant]
     Dosage: 15 MG, QD
     Route: 048
  16. LEVOTHYROXINE SODIUM [Concomitant]
     Dosage: 0.05 MG, QD
     Route: 048

REACTIONS (20)
  - BLOOD CALCIUM DECREASED [None]
  - CARBON DIOXIDE DECREASED [None]
  - DECREASED APPETITE [None]
  - DEHYDRATION [None]
  - DIZZINESS [None]
  - HEADACHE [None]
  - HOT FLUSH [None]
  - INFLUENZA LIKE ILLNESS [None]
  - INSOMNIA [None]
  - LYMPHOCYTE COUNT DECREASED [None]
  - MYALGIA [None]
  - NAUSEA [None]
  - NECK PAIN [None]
  - ORTHOSTATIC HYPOTENSION [None]
  - PAIN [None]
  - PYREXIA [None]
  - RALES [None]
  - THROMBOCYTOPENIA [None]
  - VOMITING [None]
  - WHITE BLOOD CELL COUNT DECREASED [None]
